FAERS Safety Report 15536247 (Version 1)
Quarter: 2018Q4

REPORT INFORMATION
  Report Type: Spontaneous
  Country: US (occurrence: US)
  Receive Date: 20181015
  Receipt Date: 20181015
  Transmission Date: 20190205
  Serious: Yes (Hospitalization)
  Sender: FDA-Public Use
  Company Number: None

PATIENT
  Age: 57 Year
  Sex: Male
  Weight: 96.4 kg

DRUGS (1)
  1. MELOXICAM. [Suspect]
     Active Substance: MELOXICAM
     Indication: ARTHRITIS
     Route: 048
     Dates: start: 20170130, end: 20171206

REACTIONS (5)
  - Orthostatic hypotension [None]
  - Haemorrhage [None]
  - Faeces discoloured [None]
  - Haematochezia [None]
  - Haemoglobin decreased [None]

NARRATIVE: CASE EVENT DATE: 20171206
